FAERS Safety Report 6340937-X (Version None)
Quarter: 2009Q3

REPORT INFORMATION
  Report Type: 
  Country: None (occurrence: None)
  Receive Date: 20090902
  Receipt Date: 20090902
  Transmission Date: 20100115
  Serious: Yes (Other)
  Sender: FDA-Public Use
  Company Number: None

PATIENT
  Sex: Male
  Weight: 81.6475 kg

DRUGS (1)
  1. HYDROXYCHLOROQUINE 200MG [Suspect]
     Indication: ARTHRALGIA
     Dosage: ONE TWICE PER DAY PO
     Route: 048
     Dates: start: 20090630, end: 20090720

REACTIONS (2)
  - PRODUCT SUBSTITUTION ISSUE [None]
  - TREATMENT FAILURE [None]
